FAERS Safety Report 20314668 (Version 1)
Quarter: 2022Q1

REPORT INFORMATION
  Report Type: Spontaneous
  Country: CN (occurrence: CN)
  Receive Date: 20220109
  Receipt Date: 20220109
  Transmission Date: 20220423
  Serious: Yes (Life-Threatening)
  Sender: FDA-Public Use
  Company Number: CN-SUN PHARMACEUTICAL INDUSTRIES LTD-2021R1-322656

PATIENT
  Age: 60 Year
  Sex: Female

DRUGS (1)
  1. BICALUTAMIDE [Suspect]
     Active Substance: BICALUTAMIDE
     Indication: Breast cancer
     Dosage: UNK
     Route: 065
     Dates: start: 20191012

REACTIONS (1)
  - Neoplasm progression [Unknown]
